FAERS Safety Report 13580169 (Version 1)
Quarter: 2017Q2

REPORT INFORMATION
  Report Type: Spontaneous
  Country: US (occurrence: US)
  Receive Date: 20170525
  Receipt Date: 20170525
  Transmission Date: 20170830
  Serious: Yes (Death, Other)
  Sender: FDA-Public Use
  Company Number: US-UCBSA-2017019922

PATIENT
  Age: 51 Year
  Sex: Male

DRUGS (1)
  1. LEVOCETIRIZINE HYDROCHLORIDE [Suspect]
     Active Substance: LEVOCETIRIZINE HYDROCHLORIDE
     Indication: MULTIPLE ALLERGIES
     Dosage: 5 MG, ONCE DAILY (QD)
     Dates: end: 20170508

REACTIONS (2)
  - Completed suicide [Fatal]
  - Fatigue [Unknown]

NARRATIVE: CASE EVENT DATE: 20170508
